FAERS Safety Report 8583366-0 (Version None)
Quarter: 2012Q3

REPORT INFORMATION
  Report Type: 
  Country: None (occurrence: None)
  Receive Date: 20120809
  Receipt Date: 20120808
  Transmission Date: 20120928
  Serious: Yes (Other)
  Sender: FDA-Public Use
  Company Number: US-ROCHE-1065787

PATIENT
  Sex: Male
  Weight: 88.53 kg

DRUGS (3)
  1. LASIX [Concomitant]
  2. ACCUTANE [Suspect]
     Indication: ACNE
     Route: 065
     Dates: start: 20000120, end: 20000427
  3. DIGOXIN [Concomitant]

REACTIONS (5)
  - DEPRESSION [None]
  - STRESS [None]
  - IRRITABLE BOWEL SYNDROME [None]
  - INFLAMMATORY BOWEL DISEASE [None]
  - COLITIS ULCERATIVE [None]
